FAERS Safety Report 9832542 (Version 2)
Quarter: 2014Q2

REPORT INFORMATION
  Report Type: Spontaneous
  Country: IT (occurrence: IT)
  Receive Date: 20140121
  Receipt Date: 20140502
  Transmission Date: 20141212
  Serious: Yes (Other)
  Sender: FDA-Public Use
  Company Number: IT-ELI_LILLY_AND_COMPANY-IT201401003489

PATIENT
  Age: 87 Year
  Sex: Female

DRUGS (4)
  1. HUMALOG LISPRO [Suspect]
     Indication: PRODUCT USED FOR UNKNOWN INDICATION
     Dosage: UNK UNK, SINGLE
     Route: 065
     Dates: start: 20131221
  2. HUMALOG LISPRO [Suspect]
     Dosage: 8 U, SINGLE
     Route: 065
  3. GASTROLOC                          /00661201/ [Concomitant]
  4. RAMIPRIL ACTAVIS [Concomitant]

REACTIONS (2)
  - Blood pressure decreased [Unknown]
  - Fatigue [Unknown]
